FAERS Safety Report 15012787 (Version 1)
Quarter: 2018Q2

REPORT INFORMATION
  Report Type: Spontaneous
  Country: US (occurrence: US)
  Receive Date: 20180522
  Receipt Date: 20180522
  Transmission Date: 20180711
  Serious: No
  Sender: FDA-Public Use
  Company Number: None

PATIENT
  Age: 66 Year
  Sex: Female
  Weight: 70.8 kg

DRUGS (1)
  1. PAZOPANIB (GW786034) [Suspect]
     Active Substance: PAZOPANIB
     Dates: end: 20180311

REACTIONS (1)
  - Aspartate aminotransferase increased [None]

NARRATIVE: CASE EVENT DATE: 20180312
